FAERS Safety Report 19563871 (Version 1)
Quarter: 2021Q3

REPORT INFORMATION
  Report Type: Spontaneous
  Country: US (occurrence: US)
  Receive Date: 20210716
  Receipt Date: 20210716
  Transmission Date: 20211014
  Serious: No
  Sender: FDA-Public Use
  Company Number: US-PFIZER INC-2021727792

PATIENT
  Age: 19 Year
  Sex: Female
  Weight: 72.57 kg

DRUGS (2)
  1. GENOTROPIN [Suspect]
     Active Substance: SOMATROPIN
     Dosage: 0.4 MG ADMIN 2 NIGHTS X/WEEK
  2. GENOTROPIN [Suspect]
     Active Substance: SOMATROPIN
     Dosage: 1 MG ADMIN 5 NIGHTS X/WEEK

REACTIONS (2)
  - Device issue [Unknown]
  - Off label use [Unknown]
